FAERS Safety Report 5611838-7 (Version None)
Quarter: 2008Q1

REPORT INFORMATION
  Report Type: 
  Country: None (occurrence: None)
  Receive Date: 20080204
  Receipt Date: 20080123
  Transmission Date: 20080703
  Serious: Yes (Hospitalization)
  Sender: FDA-Public Use
  Company Number: HR-JNJFOC-20080107103

PATIENT
  Sex: Female
  Weight: 3.5 kg

DRUGS (1)
  1. RISPOLEPT CONSTA [Suspect]
     Indication: DRUG EXPOSURE DURING PREGNANCY

REACTIONS (1)
  - SOCIAL STAY HOSPITALISATION [None]
